FAERS Safety Report 10714532 (Version 4)
Quarter: 2015Q1

REPORT INFORMATION
  Report Type: Spontaneous
  Country: NL (occurrence: NL)
  Receive Date: 20150115
  Receipt Date: 20150129
  Transmission Date: 20150721
  Serious: Yes (Other)
  Sender: FDA-Public Use
  Company Number: PHHY2015NL003682

PATIENT
  Age: 61 Year
  Sex: Female

DRUGS (2)
  1. DICLOFENAC [Suspect]
     Active Substance: DICLOFENAC
     Indication: PAIN
     Route: 030
  2. DICLOFENAC [Suspect]
     Active Substance: DICLOFENAC
     Indication: RENAL COLIC

REACTIONS (8)
  - Embolia cutis medicamentosa [Unknown]
  - Erythema [Unknown]
  - Dermatitis [Unknown]
  - Blister [Unknown]
  - Pyrexia [Unknown]
  - Skin lesion [Unknown]
  - Skin necrosis [Unknown]
  - Pain [Unknown]
